FAERS Safety Report 8106054 (Version 3)
Quarter: 2013Q4

REPORT INFORMATION
  Report Type: Spontaneous
  Country: US (occurrence: US)
  Receive Date: 20110825
  Receipt Date: 20131125
  Transmission Date: 20140711
  Serious: Yes (Hospitalization, Other)
  Sender: FDA-Public Use
  Company Number: US-BAYER-2011-075397

PATIENT
  Age: 28 Year
  Sex: Female
  Weight: 42 kg

DRUGS (5)
  1. YASMIN [Suspect]
     Indication: ORAL CONTRACEPTION
     Dosage: UNK
     Dates: start: 200103, end: 200205
  2. YASMIN [Suspect]
     Indication: ORAL CONTRACEPTION
     Dosage: UNK
     Dates: start: 200307, end: 200509
  3. LORAZEPAM [Concomitant]
     Dosage: 0.5 MG, UNK
  4. ALPRAZOLAM [Concomitant]
     Dosage: 0.5 MG, UNK
  5. PENICILLIN VK [Concomitant]
     Dosage: 500 MG, UNK

REACTIONS (2)
  - Gallbladder injury [None]
  - Biliary dyskinesia [None]
